FAERS Safety Report 4754197-4 (Version None)
Quarter: 2005Q3

REPORT INFORMATION
  Report Type: 
  Country: None (occurrence: None)
  Receive Date: 20050826
  Receipt Date: 20050812
  Transmission Date: 20060218
  Serious: Yes (Hospitalization)
  Sender: FDA-Public Use
  Company Number: 2005-02979

PATIENT
  Age: 76 Year
  Sex: Female
  Weight: 47.2 kg

DRUGS (1)
  1. MINOCYCLINE HYDROCHLORIDE [Suspect]
     Dosage: 1 CAPSUL, BID, ORAL
     Route: 048

REACTIONS (5)
  - EYE DISORDER [None]
  - FEELING ABNORMAL [None]
  - HEARING IMPAIRED [None]
  - NASAL DISORDER [None]
  - ORAL INTAKE REDUCED [None]
